FAERS Safety Report 11094527 (Version 1)
Quarter: 2015Q2

REPORT INFORMATION
  Report Type: Spontaneous
  Country: US (occurrence: US)
  Receive Date: 20150506
  Receipt Date: 20150506
  Transmission Date: 20150821
  Serious: No
  Sender: FDA-Public Use
  Company Number: US-ANACOR-2015ANA00009

PATIENT
  Age: 75 Year
  Sex: Female
  Weight: 57.6 kg

DRUGS (2)
  1. KERYDIN [Suspect]
     Active Substance: TAVABOROLE
     Indication: ONYCHOMYCOSIS
     Dosage: 1 DOSAGE UNITS, 1X/DAY
     Route: 061
     Dates: start: 201502, end: 201502
  2. KERYDIN [Suspect]
     Active Substance: TAVABOROLE
     Dosage: 1 GTT, 1X/DAY
     Route: 061
     Dates: start: 201502, end: 201502

REACTIONS (7)
  - Peripheral swelling [Recovering/Resolving]
  - Localised infection [Recovering/Resolving]
  - Pain in extremity [Recovering/Resolving]
  - Pyrexia [Recovering/Resolving]
  - Application site erythema [Recovering/Resolving]
  - Mobility decreased [Recovering/Resolving]
  - Application site warmth [Recovering/Resolving]

NARRATIVE: CASE EVENT DATE: 201502
